FAERS Safety Report 15464776 (Version 4)
Quarter: 2018Q4

REPORT INFORMATION
  Report Type: Spontaneous
  Country: PR (occurrence: PR)
  Receive Date: 20181004
  Receipt Date: 20181023
  Transmission Date: 20190204
  Serious: No
  Sender: FDA-Public Use
  Company Number: PR-PFIZER INC-2018400587

PATIENT
  Age: 51 Year
  Sex: Male
  Weight: 83.91 kg

DRUGS (3)
  1. VALIUM [Concomitant]
     Active Substance: DIAZEPAM
     Indication: MUSCLE SPASMS
     Dosage: 40 MG, UNK (PER DEPENDING ON THE PAIN)
  2. TRAMADOL. [Concomitant]
     Active Substance: TRAMADOL
     Indication: PAIN
     Dosage: 50 MG, UNK (4 TIMES)
  3. LYRICA [Suspect]
     Active Substance: PREGABALIN
     Indication: PAIN
     Dosage: 300 MG, DAILY (100 MG EVERY MORNING AND 200 MG EVERY BEDTIME)
     Route: 048

REACTIONS (1)
  - No adverse event [Not Recovered/Not Resolved]
